FAERS Safety Report 10290448 (Version 1)
Quarter: 2014Q3

REPORT INFORMATION
  Report Type: Spontaneous
  Country: FR (occurrence: FR)
  Receive Date: 20140710
  Receipt Date: 20140710
  Transmission Date: 20150326
  Serious: Yes (Hospitalization)
  Sender: FDA-Public Use
  Company Number: FR-BAXTER-2014BAX036706

PATIENT
  Age: 46 Year
  Sex: Male

DRUGS (26)
  1. UROMITEXAN 600 MG, COMPRIM? [Suspect]
     Active Substance: MESNA
     Indication: PRODUCT USED FOR UNKNOWN INDICATION
     Dosage: FIRST COURSE, FIRST DAY
     Route: 048
     Dates: start: 20140425
  2. ENDOXAN 1000 MG, POUDRE POUR SOLUTION INJECTABLE [Suspect]
     Active Substance: CYCLOPHOSPHAMIDE
     Indication: PRODUCT USED FOR UNKNOWN INDICATION
     Dosage: FIRST COURSE, FIRST DAY
     Route: 042
     Dates: start: 20140425
  3. ENDOXAN 1000 MG, POUDRE POUR SOLUTION INJECTABLE [Suspect]
     Active Substance: CYCLOPHOSPHAMIDE
     Dosage: FIRST COURSE, SECOND DAY
     Route: 042
     Dates: start: 20140426
  4. ENDOXAN 1000 MG, POUDRE POUR SOLUTION INJECTABLE [Suspect]
     Active Substance: CYCLOPHOSPHAMIDE
     Dosage: FIRST COURSE, THIRD DAY
     Route: 042
     Dates: start: 20140427
  5. ENDOXAN 1000 MG, POUDRE POUR SOLUTION INJECTABLE [Suspect]
     Active Substance: CYCLOPHOSPHAMIDE
     Dosage: SECOND COURSE, SECOND DAY
     Route: 042
     Dates: start: 20140517
  6. ENDOXAN 1000 MG, POUDRE POUR SOLUTION INJECTABLE [Suspect]
     Active Substance: CYCLOPHOSPHAMIDE
     Dosage: SECOND COURSE, THIRD DAY
     Route: 042
     Dates: start: 20140518, end: 20140518
  7. DOXORUBICINE [Suspect]
     Active Substance: DOXORUBICIN
     Dosage: SECOND COURSE, FIRST DAY
     Route: 042
     Dates: start: 20140516, end: 20140516
  8. INEXIUM [Concomitant]
     Active Substance: ESOMEPRAZOLE
     Indication: PRODUCT USED FOR UNKNOWN INDICATION
     Route: 065
  9. CELLTOP 100 MG/5 ML, SOLUTION INJECTABLE POUR PERFUSION [Suspect]
     Active Substance: ETOPOSIDE
     Dosage: SECOND COURSE, FIRST DAY
     Route: 042
     Dates: start: 20140516, end: 20140516
  10. CEFTRIAXONE. [Suspect]
     Active Substance: CEFTRIAXONE
     Indication: PRODUCT USED FOR UNKNOWN INDICATION
     Route: 065
     Dates: start: 20140428, end: 20140509
  11. VINCRISTINE [Suspect]
     Active Substance: VINCRISTINE
     Route: 042
     Dates: start: 20140523, end: 20140523
  12. NATULAN [Suspect]
     Active Substance: PROCARBAZINE HYDROCHLORIDE
     Indication: PRODUCT USED FOR UNKNOWN INDICATION
     Route: 048
     Dates: start: 20140425, end: 20140502
  13. DOXORUBICINE [Suspect]
     Active Substance: DOXORUBICIN
     Indication: PRODUCT USED FOR UNKNOWN INDICATION
     Dosage: FIRST COURSE, FIRST DAY
     Route: 042
     Dates: start: 20140425
  14. CORTANCYL [Suspect]
     Active Substance: PREDNISONE
     Indication: PRODUCT USED FOR UNKNOWN INDICATION
     Route: 048
     Dates: start: 20140428, end: 20140509
  15. CRESTOR [Concomitant]
     Active Substance: ROSUVASTATIN CALCIUM
     Indication: PRODUCT USED FOR UNKNOWN INDICATION
     Route: 065
  16. CELLTOP 100 MG/5 ML, SOLUTION INJECTABLE POUR PERFUSION [Suspect]
     Active Substance: ETOPOSIDE
     Indication: PRODUCT USED FOR UNKNOWN INDICATION
     Dosage: FIRST COURSE, FIRST DAY
     Route: 042
     Dates: start: 20140425
  17. NATULAN [Suspect]
     Active Substance: PROCARBAZINE HYDROCHLORIDE
     Route: 048
     Dates: start: 20140516, end: 20140522
  18. GRANOCYTE [Suspect]
     Active Substance: LENOGRASTIM
     Indication: PRODUCT USED FOR UNKNOWN INDICATION
     Route: 042
     Dates: start: 20140509, end: 20140514
  19. GRANOCYTE [Suspect]
     Active Substance: LENOGRASTIM
     Route: 042
     Dates: start: 20140524, end: 20140528
  20. AUGMENTIN [Suspect]
     Active Substance: AMOXICILLIN\CLAVULANATE POTASSIUM
     Indication: PRODUCT USED FOR UNKNOWN INDICATION
     Route: 048
     Dates: start: 20140509, end: 20140603
  21. VINCRISTINE [Suspect]
     Active Substance: VINCRISTINE
     Indication: PRODUCT USED FOR UNKNOWN INDICATION
     Route: 042
     Dates: start: 20140502
  22. IMOVANE [Concomitant]
     Active Substance: ZOPICLONE
     Indication: PRODUCT USED FOR UNKNOWN INDICATION
     Route: 065
  23. UROMITEXAN 600 MG, COMPRIM? [Suspect]
     Active Substance: MESNA
     Dosage: SECOND COURSE, FIRST DAY
     Route: 048
     Dates: start: 20140516, end: 20140516
  24. PLAVIX [Concomitant]
     Active Substance: CLOPIDOGREL BISULFATE
     Indication: PRODUCT USED FOR UNKNOWN INDICATION
     Route: 065
  25. ENDOXAN 1000 MG, POUDRE POUR SOLUTION INJECTABLE [Suspect]
     Active Substance: CYCLOPHOSPHAMIDE
     Dosage: SECOND COURSE, FIRST DAY
     Route: 042
     Dates: start: 20140516
  26. TRAMADOL [Concomitant]
     Active Substance: TRAMADOL
     Indication: PRODUCT USED FOR UNKNOWN INDICATION
     Route: 065

REACTIONS (1)
  - Interstitial lung disease [Unknown]

NARRATIVE: CASE EVENT DATE: 20140601
